FAERS Safety Report 7914566-8 (Version None)
Quarter: 2011Q4

REPORT INFORMATION
  Report Type: 
  Country: None (occurrence: None)
  Receive Date: 20111115
  Receipt Date: 20111103
  Transmission Date: 20120403
  Serious: Yes (Other)
  Sender: FDA-Public Use
  Company Number: PHHY2011CA03045

PATIENT
  Sex: Female

DRUGS (2)
  1. SANDOSTATIN LAR [Suspect]
     Indication: CARCINOID TUMOUR
     Dosage: 30 MG, EVERY 04 WEEKS
     Route: 030
     Dates: start: 20040616
  2. SANDOSTATIN LAR [Suspect]
     Dosage: 30 MG, UNK
     Dates: start: 20101217

REACTIONS (10)
  - MALAISE [None]
  - FLUSHING [None]
  - ABDOMINAL DISTENSION [None]
  - ANXIETY [None]
  - GASTROINTESTINAL DISORDER [None]
  - FEELING HOT [None]
  - NAUSEA [None]
  - ABDOMINAL PAIN [None]
  - DIARRHOEA [None]
  - VOMITING [None]
